FAERS Safety Report 10233766 (Version 1)
Quarter: 2014Q2

REPORT INFORMATION
  Report Type: Spontaneous
  Country: US (occurrence: US)
  Receive Date: 20140612
  Receipt Date: 20140612
  Transmission Date: 20141212
  Serious: Yes (Other)
  Sender: FDA-Public Use
  Company Number: US-ACTAVIS-2014-12235

PATIENT
  Age: 59 Year
  Sex: Male

DRUGS (16)
  1. ESCITALOPRAM (UNKNOWN) [Suspect]
     Indication: DEPRESSION
     Dosage: 5 MG, DAILY
     Route: 065
  2. WARFARIN (UNKNOWN) [Interacting]
     Indication: PRODUCT USED FOR UNKNOWN INDICATION
     Dosage: 4 MG, DAILY
     Route: 065
  3. OMEPRAZOLE (WATSON LABORATORIES) [Interacting]
     Indication: PRODUCT USED FOR UNKNOWN INDICATION
     Dosage: 20 MG, DAILY
     Route: 065
  4. FUROSEMIDE [Concomitant]
     Indication: PRODUCT USED FOR UNKNOWN INDICATION
     Dosage: 40 MG, DAILY
     Route: 065
  5. METOPROLOL TARTRATE [Concomitant]
     Indication: PRODUCT USED FOR UNKNOWN INDICATION
     Dosage: 50 MG, BID
     Route: 065
  6. AMIODARONE [Concomitant]
     Indication: PRODUCT USED FOR UNKNOWN INDICATION
     Dosage: 200 MG, DAILY
     Route: 065
  7. ALBUTEROL W/IPRATROPIUM [Concomitant]
     Indication: ASTHMA
     Dosage: 3 ML; INHALE CONTENTS OF 1 VIAL EVERY 2 HOURS, AS NEEDED (2.5 MG/0.5 MG)
     Route: 055
  8. DOCUSATE W/SENNA [Concomitant]
     Indication: PRODUCT USED FOR UNKNOWN INDICATION
     Dosage: 5/8.6 MG TWO TABLETS  ONCE A DAY
     Route: 048
  9. HUMALOG [Concomitant]
     Indication: BLOOD GLUCOSE INCREASED
     Dosage: 100 UNITS/ML
     Route: 065
  10. NYSTOP [Concomitant]
     Indication: PRODUCT USED FOR UNKNOWN INDICATION
     Dosage: 100000 UNITS/G; TWICE DAILY TO BILATERAL GROIN
     Route: 061
  11. ACETAMINOPHEN [Concomitant]
     Indication: PRODUCT USED FOR UNKNOWN INDICATION
     Dosage: 650 MG AS NEEDED
     Route: 065
  12. BISACODYL [Concomitant]
     Indication: PRODUCT USED FOR UNKNOWN INDICATION
     Dosage: SUPPOSITORIES 10 MG, DAILY, AS NEEDED
     Route: 065
  13. GUAIFENESIN [Concomitant]
     Indication: PRODUCT USED FOR UNKNOWN INDICATION
     Dosage: 600 MG, BID
     Route: 065
  14. TRIAMCINOLONE [Concomitant]
     Indication: PRODUCT USED FOR UNKNOWN INDICATION
     Dosage: 0.1% TWICE DAILY
     Route: 061
  15. FLUTICASONE PROPIONATE [Concomitant]
     Indication: PRODUCT USED FOR UNKNOWN INDICATION
     Dosage: 220 ?G, BID
     Route: 065
  16. ONDANSETRON [Concomitant]
     Indication: PRODUCT USED FOR UNKNOWN INDICATION
     Dosage: 4 MG, Q6H, AS NEEDED
     Route: 065

REACTIONS (3)
  - Urinary retention [Recovered/Resolved]
  - International normalised ratio fluctuation [Recovered/Resolved]
  - Drug interaction [Recovered/Resolved]
